FAERS Safety Report 4657649-0 (Version None)
Quarter: 2005Q2

REPORT INFORMATION
  Report Type: 
  Country: None (occurrence: None)
  Receive Date: 20050404
  Receipt Date: 20050321
  Transmission Date: 20051028
  Serious: Yes (Hospitalization)
  Sender: FDA-Public Use
  Company Number: 2005UW04491

PATIENT
  Age: 80 Year
  Sex: Female

DRUGS (5)
  1. CRESTOR [Suspect]
     Indication: HYPERCHOLESTEROLAEMIA
     Dosage: 10 MG QD PO
     Route: 048
     Dates: end: 20050301
  2. LISINOPRIL [Suspect]
  3. HYDROCHLOROTHIAZIDE [Suspect]
  4. ANITBIOTICS [Concomitant]
  5. NO MATCH [Concomitant]

REACTIONS (3)
  - PANCREATITIS [None]
  - PNEUMONIA [None]
  - RHABDOMYOLYSIS [None]
